FAERS Safety Report 15992259 (Version 1)
Quarter: 2019Q1

REPORT INFORMATION
  Report Type: Spontaneous
  Country: US (occurrence: US)
  Receive Date: 20190221
  Receipt Date: 20190221
  Transmission Date: 20190418
  Serious: Yes (Other)
  Sender: FDA-Public Use
  Company Number: US-PFIZER INC-2019078931

PATIENT
  Age: 57 Year
  Sex: Female

DRUGS (1)
  1. XELJANZ [Suspect]
     Active Substance: TOFACITINIB CITRATE
     Indication: RHEUMATOID ARTHRITIS
     Dosage: 5 MG, 2X/DAY [TWICE A DAY ]
     Route: 048
     Dates: start: 201901

REACTIONS (2)
  - Haematemesis [Not Recovered/Not Resolved]
  - Oesophageal haemorrhage [Unknown]

NARRATIVE: CASE EVENT DATE: 20190212
